FAERS Safety Report 9326115 (Version 1)
Quarter: 2013Q2

REPORT INFORMATION
  Report Type: Spontaneous
  Country: US (occurrence: US)
  Receive Date: 20130604
  Receipt Date: 20130604
  Transmission Date: 20140414
  Serious: Yes (Hospitalization)
  Sender: FDA-Public Use
  Company Number: US-SANOFI-AVENTIS-2013SA056074

PATIENT
  Age: 12 Year
  Sex: Male

DRUGS (6)
  1. NASACORT [Suspect]
     Indication: HYPERSENSITIVITY
     Route: 065
  2. ZYRTEC [Suspect]
     Indication: PRODUCT USED FOR UNKNOWN INDICATION
     Route: 065
  3. GUAIFENESIN [Suspect]
     Indication: PRODUCT USED FOR UNKNOWN INDICATION
     Route: 065
  4. ALBUTEROL [Concomitant]
     Route: 065
  5. ANTIHISTAMINES [Concomitant]
     Route: 065
  6. CORTICOSTEROIDS [Concomitant]
     Route: 065

REACTIONS (4)
  - Inflammatory bowel disease [Recovering/Resolving]
  - Rectal haemorrhage [Recovering/Resolving]
  - Colitis [Recovering/Resolving]
  - Pancreatitis [Recovered/Resolved]
